FAERS Safety Report 21250006 (Version 1)
Quarter: 2022Q3

REPORT INFORMATION
  Report Type: Report from Study
  Country: US (occurrence: US)
  Receive Date: 20220824
  Receipt Date: 20220824
  Transmission Date: 20221027
  Serious: Yes (Hospitalization)
  Sender: FDA-Public Use
  Company Number: US-ALNYLAM PHARMACEUTICALS, INC.-ALN-2022-001239

PATIENT

DRUGS (1)
  1. ONPATTRO [Suspect]
     Active Substance: PATISIRAN SODIUM
     Indication: Hereditary neuropathic amyloidosis
     Dosage: INFUSION
     Route: 042
     Dates: start: 20210609

REACTIONS (5)
  - Fall [Unknown]
  - Face injury [Unknown]
  - Lower limb fracture [Unknown]
  - Drug effect less than expected [Unknown]
  - COVID-19 [Unknown]
